FAERS Safety Report 5304382-8 (Version None)
Quarter: 2007Q2

REPORT INFORMATION
  Report Type: 
  Country: None (occurrence: None)
  Receive Date: 20070419
  Receipt Date: 20070419
  Transmission Date: 20071010
  Serious: Yes (Hospitalization)
  Sender: FDA-Public Use
  Company Number: None

PATIENT
  Sex: Female

DRUGS (7)
  1. CETUXIMAB [Suspect]
     Dosage: IV  (362 MG)
     Route: 042
     Dates: start: 20070412
  2. GEMCITABINE HCL [Suspect]
     Dosage: IV  (1450 MG)
     Dates: start: 20070412
  3. OXALIPLATIN [Suspect]
     Dosage: IV   (145 MG)
     Route: 042
     Dates: start: 20070413
  4. AMITRIPTYLINE HCL [Concomitant]
  5. MORPHINE (SLOW RELEASE) [Concomitant]
  6. MORPHINE [Concomitant]
  7. TYLENOL [Concomitant]

REACTIONS (1)
  - JAUNDICE [None]
